FAERS Safety Report 4515042-5 (Version None)
Quarter: 2004Q4

REPORT INFORMATION
  Report Type: 
  Country: None (occurrence: None)
  Receive Date: 20041201
  Receipt Date: 20041123
  Transmission Date: 20050328
  Serious: Yes (Life-Threatening)
  Sender: FDA-Public Use
  Company Number: PHBS2004CH15747

PATIENT
  Age: 65 Year
  Sex: Male

DRUGS (5)
  1. LAMISIL [Suspect]
     Indication: NAIL TINEA
     Dosage: 250 MG/D
     Route: 048
  2. ISOPTIN [Concomitant]
     Indication: ARRHYTHMIA
  3. PADMA 28 [Concomitant]
  4. ASPEGIC 325 [Concomitant]
  5. TOCOPHERYL ACETATE [Concomitant]

REACTIONS (3)
  - ARRHYTHMIA [None]
  - DRUG INTERACTION [None]
  - TACHYCARDIA [None]
